FAERS Safety Report 12062504 (Version 1)
Quarter: 2016Q1

REPORT INFORMATION
  Report Type: Spontaneous
  Country: US (occurrence: US)
  Receive Date: 20160210
  Receipt Date: 20160210
  Transmission Date: 20160526
  Serious: No
  Sender: FDA-Public Use
  Company Number: US-ALLERGAN-1309067US

PATIENT
  Sex: Female

DRUGS (3)
  1. BOTOX COSMETIC [Suspect]
     Active Substance: ONABOTULINUMTOXINA
     Indication: SKIN WRINKLING
  2. BOTOX COSMETIC [Suspect]
     Active Substance: ONABOTULINUMTOXINA
     Indication: SKIN WRINKLING
  3. BOTOX COSMETIC [Suspect]
     Active Substance: ONABOTULINUMTOXINA
     Indication: SKIN WRINKLING
     Dosage: 60 UNITS, SINGLE
     Route: 030
     Dates: start: 20130612, end: 20130612

REACTIONS (9)
  - Dizziness [Unknown]
  - Erythema of eyelid [Unknown]
  - Eye swelling [Unknown]
  - Skin discolouration [Unknown]
  - Eyelid oedema [Unknown]
  - Muscle disorder [Unknown]
  - Off label use [Unknown]
  - Headache [Unknown]
  - Eyelid ptosis [Unknown]
